FAERS Safety Report 7457078-0 (Version None)
Quarter: 2011Q1

REPORT INFORMATION
  Report Type: 
  Country: None (occurrence: None)
  Receive Date: 20110302
  Receipt Date: 20101213
  Transmission Date: 20110831
  Serious: No
  Sender: FDA-Public Use
  Company Number: 023757

PATIENT
  Sex: Female
  Weight: 59 kg

DRUGS (4)
  1. THYROID TAB [Concomitant]
  2. METHOTREXATE [Concomitant]
  3. CIMZIA [Suspect]
     Indication: RHEUMATOID ARTHRITIS
     Dosage: (200 MG 1X/2 WEEKS SUBCUTANEOUS)
     Route: 058
     Dates: start: 20090101
  4. INDOCIN /00003801/ [Concomitant]

REACTIONS (2)
  - DRUG INEFFECTIVE [None]
  - ORAL CANDIDIASIS [None]
